FAERS Safety Report 5188137-3 (Version None)
Quarter: 2006Q4

REPORT INFORMATION
  Report Type: 
  Country: None (occurrence: None)
  Receive Date: 20061221
  Receipt Date: 20061211
  Transmission Date: 20070319
  Serious: Yes (Other)
  Sender: FDA-Public Use
  Company Number: 2006AC02323

PATIENT
  Age: 43 Year
  Sex: Female

DRUGS (1)
  1. ARIMIDEX [Suspect]
     Route: 048
     Dates: start: 20051127, end: 20060304

REACTIONS (6)
  - ALOPECIA [None]
  - ARTHROPATHY [None]
  - ASTHENIA [None]
  - ERYTHEMA [None]
  - HEADACHE [None]
  - OEDEMA PERIPHERAL [None]
